FAERS Safety Report 18749274 (Version 1)
Quarter: 2021Q1

REPORT INFORMATION
  Report Type: Spontaneous
  Country: US (occurrence: US)
  Receive Date: 20210116
  Receipt Date: 20210116
  Transmission Date: 20210419
  Serious: No
  Sender: FDA-Public Use
  Company Number: US-UNITED THERAPEUTICS-UNT-2021-000427

PATIENT
  Age: 3 Year
  Sex: Female

DRUGS (1)
  1. UNITUXIN [Suspect]
     Active Substance: DINUTUXIMAB
     Indication: PRODUCT USED FOR UNKNOWN INDICATION
     Dosage: UNK, CYCLICAL (CYCLE 4)
     Route: 041

REACTIONS (1)
  - Blood creatinine increased [Unknown]
